FAERS Safety Report 4818572-1 (Version None)
Quarter: 2005Q4

REPORT INFORMATION
  Report Type: 
  Country: None (occurrence: None)
  Receive Date: 20051031
  Receipt Date: 20051021
  Transmission Date: 20060501
  Serious: Yes (Hospitalization, Other)
  Sender: FDA-Public Use
  Company Number: HQWYE820804OCT05

PATIENT
  Age: 44 Year
  Sex: Male

DRUGS (9)
  1. RAPAMUNE [Suspect]
     Indication: PROPHYLAXIS AGAINST TRANSPLANT REJECTION
     Dosage: SEE IMAGE
     Route: 048
     Dates: start: 20050802, end: 20051006
  2. RAPAMUNE [Suspect]
     Indication: PROPHYLAXIS AGAINST TRANSPLANT REJECTION
     Dosage: SEE IMAGE
     Route: 048
     Dates: start: 20050907
  3. ADALAT (NEFEDIPINE [Concomitant]
  4. PRAZOSIN GITS [Concomitant]
  5. BACTRIM [Concomitant]
  6. SIMVASTATIN [Concomitant]
  7. LOSEC (OMEPRAZOLE) [Concomitant]
  8. METOPROLOL TARTRATE [Concomitant]
  9. MYCOPHENOLATE MOFETIL [Suspect]
     Indication: RENAL TRANSPLANT
     Dosage: 1500 MG 1 X/D
     Route: 048
     Dates: start: 20501007

REACTIONS (7)
  - CONDITION AGGRAVATED [None]
  - DIARRHOEA [None]
  - DRUG INEFFECTIVE [None]
  - GAMMA-GLUTAMYLTRANSFERASE INCREASED [None]
  - HEADACHE [None]
  - HYPERTENSION [None]
  - TRANSPLANT REJECTION [None]
